FAERS Safety Report 7685454-X (Version None)
Quarter: 2011Q3

REPORT INFORMATION
  Report Type: 
  Country: None (occurrence: None)
  Receive Date: 20110816
  Receipt Date: 20110224
  Transmission Date: 20111222
  Serious: No
  Sender: FDA-Public Use
  Company Number: US-BRISTOL-MYERS SQUIBB COMPANY-15337405

PATIENT
  Age: 61 Year
  Sex: Female

DRUGS (4)
  1. GLIPIZIDE [Concomitant]
  2. GLUCOVANCE [Suspect]
     Indication: TYPE 2 DIABETES MELLITUS
     Dosage: SINCE 10 YRS, RESTARTED 2 MONTHS AGO 1DF:5/500(UNIT NOT SPECIFIED)
     Route: 048
  3. ACTOS [Concomitant]
  4. ONGLYZA [Concomitant]

REACTIONS (2)
  - BLOOD GLUCOSE INCREASED [None]
  - ABDOMINAL DISCOMFORT [None]
